FAERS Safety Report 17052043 (Version 2)
Quarter: 2019Q4

REPORT INFORMATION
  Report Type: Report from Study
  Country: US (occurrence: US)
  Receive Date: 20191120
  Receipt Date: 20191211
  Transmission Date: 20200122
  Serious: Yes (Death, Hospitalization, Other)
  Sender: FDA-Public Use
  Company Number: US-ASTELLAS-2019US042793

PATIENT
  Age: 64 Year
  Sex: Male

DRUGS (1)
  1. ASP2215 [Suspect]
     Active Substance: GILTERITINIB
     Indication: ACUTE MYELOID LEUKAEMIA
     Route: 048
     Dates: start: 20191002, end: 201910

REACTIONS (4)
  - Drug ineffective [Unknown]
  - Joint swelling [Unknown]
  - Death [Fatal]
  - Decreased activity [Unknown]

NARRATIVE: CASE EVENT DATE: 201910
